FAERS Safety Report 9776211 (Version 3)
Quarter: 2015Q3

REPORT INFORMATION
  Report Type: Spontaneous
  Country: GB (occurrence: GB)
  Receive Date: 20131220
  Receipt Date: 20150727
  Transmission Date: 20151125
  Serious: Yes (Death, Other)
  Sender: FDA-Public Use
  Company Number: GB-TAKEDA-THQ2013A02180

PATIENT
  Age: 48 Year
  Sex: Female

DRUGS (4)
  1. DIHYDROCODEINE [Concomitant]
     Active Substance: DIHYDROCODEINE
     Dosage: UNK
     Route: 065
  2. MORPHINE SULFATE. [Suspect]
     Active Substance: MORPHINE SULFATE
     Indication: PRODUCT USED FOR UNKNOWN INDICATION
     Dosage: UNK
     Route: 048
  3. ZOTON [Suspect]
     Active Substance: LANSOPRAZOLE
     Indication: GASTRITIS
     Dosage: UNK
     Route: 065
  4. FERINJECT [Suspect]
     Active Substance: FERRIC CARBOXYMALTOSE
     Indication: IRON DEFICIENCY ANAEMIA
     Dosage: (1000 MG,3 TOTAL)
     Route: 042
     Dates: start: 20121127, end: 20130116

REACTIONS (8)
  - Gastrointestinal haemorrhage [Unknown]
  - Thrombocytopenia [Fatal]
  - Headache [Unknown]
  - Vaginal haemorrhage [Unknown]
  - Aplasia [Fatal]
  - Nausea [Unknown]
  - Biopsy bone marrow abnormal [Unknown]
  - Dizziness [Unknown]

NARRATIVE: CASE EVENT DATE: 201302
